FAERS Safety Report 12821182 (Version 3)
Quarter: 2016Q4

REPORT INFORMATION
  Report Type: Spontaneous
  Country: BR (occurrence: BR)
  Receive Date: 20161006
  Receipt Date: 20161012
  Transmission Date: 20170207
  Serious: Yes (Other)
  Sender: FDA-Public Use
  Company Number: BR-PFIZER INC-2016386715

PATIENT
  Age: 39 Year
  Sex: Female

DRUGS (2)
  1. GEODON [Suspect]
     Active Substance: ZIPRASIDONE HYDROCHLORIDE\ZIPRASIDONE MESYLATE
     Indication: BIPOLAR DISORDER
     Dosage: TWO CAPSULES OF 40 MG (80MG) AT NOON AND TWO CAPSULES OF 40 MG (80MG) AT NIGHT
     Route: 048
     Dates: start: 201604, end: 2016
  2. ESCITALOPRAM [Concomitant]
     Active Substance: ESCITALOPRAM OXALATE
     Dosage: UNK
     Dates: start: 2014

REACTIONS (1)
  - Drug dependence [Not Recovered/Not Resolved]
